FAERS Safety Report 6282373-0 (Version None)
Quarter: 2009Q3

REPORT INFORMATION
  Report Type: 
  Country: None (occurrence: None)
  Receive Date: 20090724
  Receipt Date: 20090716
  Transmission Date: 20100115
  Serious: No
  Sender: FDA-Public Use
  Company Number: US-JNJFOC-20090404677

PATIENT
  Sex: Male
  Weight: 95.26 kg

DRUGS (4)
  1. DURAGESIC-100 [Suspect]
     Indication: NEUROPATHY PERIPHERAL
     Dosage: 100 UG/HR PLUS 75 UG/HR
     Route: 062
  2. LOPRESSOR [Concomitant]
     Indication: BLOOD PRESSURE
     Route: 048
  3. CATAPRES [Concomitant]
     Indication: BLOOD PRESSURE
     Route: 048
  4. LORTAB [Concomitant]
     Indication: PAIN
     Dosage: 10-500
     Route: 048

REACTIONS (6)
  - APPLICATION SITE RASH [None]
  - DERMAL CYST [None]
  - DERMATITIS CONTACT [None]
  - INAPPROPRIATE SCHEDULE OF DRUG ADMINISTRATION [None]
  - NEUROPATHY PERIPHERAL [None]
  - PAIN [None]
